FAERS Safety Report 8912806 (Version 1)
Quarter: 2012Q4

REPORT INFORMATION
  Report Type: 
  Country: US (occurrence: US)
  Receive Date: 20121116
  Receipt Date: 20121116
  Transmission Date: 20130627
  Serious: No
  Sender: FDA-Public Use
  Company Number: US-009507513-1210USA005902

PATIENT
  Age: 9 Month
  Sex: Female
  Weight: 9.7 kg

DRUGS (2)
  1. CLARITIN ORAL SOLUTION [Suspect]
     Indication: COUGH
     Dosage: 1.25 mg, Once
     Route: 048
     Dates: start: 20120824
  2. CLARITIN ORAL SOLUTION [Suspect]
     Indication: MEDICAL OBSERVATION
     Dosage: 0.75 mg, Once
     Dates: start: 20120825

REACTIONS (3)
  - Inappropriate schedule of drug administration [Recovering/Resolving]
  - Drug administered to patient of inappropriate age [Unknown]
  - Off label use [Unknown]
